FAERS Safety Report 4779827-2 (Version None)
Quarter: 2005Q3

REPORT INFORMATION
  Report Type: 
  Country: None (occurrence: None)
  Receive Date: 20050927
  Receipt Date: 20050916
  Transmission Date: 20060218
  Serious: Yes (Hospitalization, Other)
  Sender: FDA-Public Use
  Company Number: JP-JNJFOC-20050905168

PATIENT
  Age: 88 Year
  Sex: Male

DRUGS (2)
  1. RISPERDAL [Suspect]
     Indication: DRUG USE FOR UNKNOWN INDICATION
     Dosage: (DOSE DIVIDED AND TAKEN THREE TIMES DAILY)
     Route: 048
  2. RISPERDAL [Suspect]
     Route: 048

REACTIONS (6)
  - AGITATION [None]
  - CARDIAC DISORDER [None]
  - DEHYDRATION [None]
  - OEDEMA [None]
  - SOMNOLENCE [None]
  - WEIGHT DECREASED [None]
